FAERS Safety Report 6711599-4 (Version None)
Quarter: 2010Q2

REPORT INFORMATION
  Report Type: 
  Country: None (occurrence: None)
  Receive Date: 20100505
  Receipt Date: 20100429
  Transmission Date: 20101027
  Serious: Yes (Death)
  Sender: FDA-Public Use
  Company Number: PHHY2010BR27305

PATIENT
  Sex: Female
  Weight: 70 kg

DRUGS (2)
  1. EXELON [Suspect]
     Indication: DEMENTIA ALZHEIMER'S TYPE
     Dosage: 9.5 MG/24 HOURS
     Route: 062
     Dates: start: 20080101
  2. VENLAFAXINE HYDROCHLORIDE [Concomitant]
     Indication: DEPRESSION
     Dosage: 0.75 MG, 1 TABLET PER DAY

REACTIONS (5)
  - BLOOD CHOLESTEROL ABNORMAL [None]
  - HYPERTENSION [None]
  - PANCREATITIS [None]
  - SEPSIS [None]
  - SEPTIC SHOCK [None]
